FAERS Safety Report 9325974 (Version 2)
Quarter: 2013Q2

REPORT INFORMATION
  Report Type: Spontaneous
  Country: JP (occurrence: JP)
  Receive Date: 20130604
  Receipt Date: 20130604
  Transmission Date: 20140414
  Serious: Yes (Hospitalization)
  Sender: FDA-Public Use
  Company Number: JP-ABBOTT-13X-087-1081844-00

PATIENT
  Age: 83 Year
  Sex: Female
  Weight: 46 kg

DRUGS (8)
  1. KLARICID [Suspect]
     Indication: PARONYCHIA
     Route: 048
     Dates: start: 20130418, end: 20130422
  2. KLARICID [Suspect]
     Indication: SKIN INFECTION
  3. ATENOTE [Suspect]
     Indication: HYPERTENSION
     Route: 048
     Dates: end: 20130422
  4. BENIDIPINE HYDROCHLORIDE [Concomitant]
     Indication: HYPERTENSION
     Route: 048
  5. VALSARTAN [Concomitant]
     Indication: HYPERTENSION
     Route: 048
  6. SENNOSIDE [Concomitant]
     Indication: CONSTIPATION
     Route: 048
  7. LORMETAZEPAM [Concomitant]
     Indication: INSOMNIA
     Route: 048
  8. MAGNESIUM OXIDE [Concomitant]
     Indication: CONSTIPATION
     Route: 048

REACTIONS (4)
  - Bradycardia [Recovered/Resolved]
  - Atrioventricular block [Recovered/Resolved]
  - Feeling abnormal [Unknown]
  - Balance disorder [Unknown]
